FAERS Safety Report 4337670-2 (Version None)
Quarter: 2004Q2

REPORT INFORMATION
  Report Type: 
  Country: None (occurrence: None)
  Receive Date: 20040409
  Receipt Date: 20040328
  Transmission Date: 20050107
  Serious: Yes (Hospitalization)
  Sender: FDA-Public Use
  Company Number: CHNY2004CA00467

PATIENT
  Age: 42 Year
  Sex: Female

DRUGS (2)
  1. TRANSDERM VOYAGER [Suspect]
     Indication: MOTION SICKNESS
     Dosage: 1 SINGLE PATCH FOR 24 H, TRANSDERMAL
     Route: 062
     Dates: start: 20040124, end: 20040124
  2. SYNTHROID [Concomitant]

REACTIONS (10)
  - ANXIETY [None]
  - DRY MOUTH [None]
  - EYE REDNESS [None]
  - FEAR OF DISEASE [None]
  - FEELING ABNORMAL [None]
  - HYPERSENSITIVITY [None]
  - MALAISE [None]
  - MYDRIASIS [None]
  - TREMOR [None]
  - VISION BLURRED [None]
